FAERS Safety Report 9280959 (Version 1)
Quarter: 2013Q2

REPORT INFORMATION
  Report Type: Spontaneous
  Country: US (occurrence: US)
  Receive Date: 20130509
  Receipt Date: 20130509
  Transmission Date: 20140414
  Serious: Yes (Other)
  Sender: FDA-Public Use
  Company Number: US-BIOMARINAP-US-2013-100725

PATIENT
  Sex: Female

DRUGS (1)
  1. KUVAN [Suspect]
     Indication: PHENYLKETONURIA
     Dosage: UNK
     Route: 048
     Dates: start: 200711, end: 200712

REACTIONS (2)
  - Foetal malpresentation [Recovered/Resolved]
  - Pregnancy [Recovered/Resolved]
